FAERS Safety Report 22343619 (Version 12)
Quarter: 2025Q1

REPORT INFORMATION
  Report Type: Report from Study
  Country: CO (occurrence: CO)
  Receive Date: 20230519
  Receipt Date: 20250207
  Transmission Date: 20250408
  Serious: Yes (Life-Threatening, Hospitalization, Other)
  Sender: NOVARTIS
  Company Number: CO-002147023-NVSC2023CO113418

PATIENT
  Sex: Female
  Weight: 89 kg

DRUGS (14)
  1. ELTROMBOPAG OLAMINE [Suspect]
     Active Substance: ELTROMBOPAG OLAMINE
     Indication: Immune thrombocytopenia
     Dosage: 75 MG, QD, (9 MONTHS AGO)
     Route: 048
     Dates: start: 2021
  2. ELTROMBOPAG OLAMINE [Suspect]
     Active Substance: ELTROMBOPAG OLAMINE
     Dosage: 75 MG, QD
     Route: 048
     Dates: start: 20210510
  3. ELTROMBOPAG OLAMINE [Suspect]
     Active Substance: ELTROMBOPAG OLAMINE
     Dosage: 50 MG, QD
     Route: 048
     Dates: start: 2021, end: 202302
  4. ELTROMBOPAG OLAMINE [Suspect]
     Active Substance: ELTROMBOPAG OLAMINE
     Dosage: 50 MG, QD, (4 YEARS AND A HALF AGO (THE EXACT DATE WAS NOT REPORTED)
     Route: 048
  5. ELTROMBOPAG OLAMINE [Suspect]
     Active Substance: ELTROMBOPAG OLAMINE
     Dosage: 75 MG, QD (1 OF 25 MG, TID)
     Route: 048
     Dates: start: 202302
  6. ELTROMBOPAG OLAMINE [Suspect]
     Active Substance: ELTROMBOPAG OLAMINE
     Dosage: 25 MG, TID (EVERY 8 HOURS)
     Route: 048
  7. ELTROMBOPAG OLAMINE [Suspect]
     Active Substance: ELTROMBOPAG OLAMINE
     Dosage: 25 MG, QD
     Route: 048
  8. ELTROMBOPAG OLAMINE [Suspect]
     Active Substance: ELTROMBOPAG OLAMINE
     Dosage: 75 MG, QD (7 DAYS AGO)
     Route: 048
  9. ELTROMBOPAG OLAMINE [Suspect]
     Active Substance: ELTROMBOPAG OLAMINE
     Dosage: 75 MG, QD
     Route: 048
  10. PREDNISOLONE [Suspect]
     Active Substance: PREDNISOLONE
     Indication: Product used for unknown indication
     Route: 065
  11. CHLOROQUINE [Concomitant]
     Active Substance: CHLOROQUINE
     Indication: Systemic lupus erythematosus
     Route: 065
     Dates: start: 2013
  12. FOLIC ACID [Concomitant]
     Active Substance: FOLIC ACID
     Indication: Product used for unknown indication
     Route: 065
     Dates: start: 2013
  13. AZATHIOPRINE [Concomitant]
     Active Substance: AZATHIOPRINE
     Indication: Systemic lupus erythematosus
     Dosage: 50 MG, QD
     Route: 048
     Dates: start: 2013
  14. PREDNISOLONE [Concomitant]
     Active Substance: PREDNISOLONE
     Indication: Product used for unknown indication
     Dosage: UNK, QD
     Route: 065

REACTIONS (35)
  - Gingival bleeding [Recovered/Resolved]
  - Contusion [Not Recovered/Not Resolved]
  - Amnesia [Not Recovered/Not Resolved]
  - Platelet count decreased [Not Recovered/Not Resolved]
  - Fatigue [Not Recovered/Not Resolved]
  - Haemorrhage [Unknown]
  - Immune thrombocytopenia [Unknown]
  - Vein disorder [Unknown]
  - Pain in extremity [Unknown]
  - Malaise [Not Recovered/Not Resolved]
  - Systemic lupus erythematosus [Unknown]
  - Disease recurrence [Recovered/Resolved]
  - Platelet disorder [Not Recovered/Not Resolved]
  - Heavy menstrual bleeding [Not Recovered/Not Resolved]
  - Headache [Unknown]
  - Depressed mood [Unknown]
  - Vaginal haemorrhage [Unknown]
  - Uterine isthmocoele [Unknown]
  - Swelling [Unknown]
  - Feeling abnormal [Unknown]
  - Uterine pain [Unknown]
  - Pelvic pain [Unknown]
  - Haematocoele [Unknown]
  - Drug intolerance [Unknown]
  - Influenza [Unknown]
  - Discouragement [Unknown]
  - Dizziness postural [Unknown]
  - Weight increased [Unknown]
  - Pain [Unknown]
  - Arthralgia [Unknown]
  - Viral infection [Unknown]
  - Nausea [Not Recovered/Not Resolved]
  - Product supply issue [Unknown]
  - General physical health deterioration [Unknown]
  - Gastrointestinal bacterial infection [Unknown]
